FAERS Safety Report 19396397 (Version 1)
Quarter: 2021Q2

REPORT INFORMATION
  Report Type: Other
  Country: SE (occurrence: SE)
  Receive Date: 20210610
  Receipt Date: 20210610
  Transmission Date: 20210717
  Serious: Yes (Hospitalization, Other)
  Sender: FDA-Public Use
  Company Number: SE-CELLTRION INC.-2021SE007703

PATIENT

DRUGS (2)
  1. REMSIMA [Suspect]
     Active Substance: INFLIXIMAB
     Indication: ANKYLOSING SPONDYLITIS
     Dosage: 400 MG
     Route: 065
     Dates: start: 20210208, end: 20210222
  2. SALAZOPYRIN [Concomitant]
     Active Substance: SULFASALAZINE
     Dosage: 2000 MG
     Dates: start: 20090127

REACTIONS (1)
  - Idiosyncratic drug reaction [Recovering/Resolving]

NARRATIVE: CASE EVENT DATE: 20210215
